FAERS Safety Report 14251634 (Version 2)
Quarter: 2019Q1

REPORT INFORMATION
  Report Type: Spontaneous
  Country: US (occurrence: US)
  Receive Date: 20171205
  Receipt Date: 20190124
  Transmission Date: 20190417
  Serious: Yes (Hospitalization)
  Sender: FDA-Public Use
  Company Number: US-ASTRAZENECA-2017SF21351

PATIENT
  Age: 20660 Day
  Sex: Female

DRUGS (6)
  1. MOVANTIK [Suspect]
     Active Substance: NALOXEGOL OXALATE
     Indication: CONSTIPATION
     Route: 048
     Dates: start: 201901
  2. MOVANTIK [Suspect]
     Active Substance: NALOXEGOL OXALATE
     Indication: CONSTIPATION
     Dosage: EVERY FEW DAYS
     Route: 048
  3. OXYCODONE [Concomitant]
     Active Substance: OXYCODONE
  4. MOVANTIK [Suspect]
     Active Substance: NALOXEGOL OXALATE
     Indication: CONSTIPATION
     Route: 048
     Dates: end: 20171124
  5. FENTANYL. [Concomitant]
     Active Substance: FENTANYL
  6. NORCO [Concomitant]
     Active Substance: ACETAMINOPHEN\HYDROCODONE BITARTRATE

REACTIONS (9)
  - Nervousness [Unknown]
  - Cystitis [Unknown]
  - Confusional state [Unknown]
  - Nervousness [Unknown]
  - Emotional distress [Unknown]
  - Pain [Unknown]
  - Intentional product misuse [Unknown]
  - Pyrexia [Unknown]
  - Drug withdrawal syndrome [Unknown]

NARRATIVE: CASE EVENT DATE: 20171124
